FAERS Safety Report 4745168-2 (Version None)
Quarter: 2005Q3

REPORT INFORMATION
  Report Type: 
  Country: None (occurrence: None)
  Receive Date: 20050815
  Receipt Date: 20050802
  Transmission Date: 20060218
  Serious: Yes (Death)
  Sender: FDA-Public Use
  Company Number: JP-JNJFOC-20050705246

PATIENT
  Sex: Male
  Weight: 50 kg

DRUGS (16)
  1. CRAVIT [Suspect]
     Indication: PNEUMONIA
     Route: 048
     Dates: start: 20050604, end: 20050610
  2. KLARICID [Suspect]
     Indication: PNEUMONIA
     Route: 048
     Dates: start: 20050610, end: 20050627
  3. BACTRAMIN [Concomitant]
     Route: 042
     Dates: start: 20050720, end: 20050720
  4. BACTRAMIN [Concomitant]
     Indication: PNEUMONIA
     Route: 042
     Dates: start: 20050720, end: 20050720
  5. PL [Concomitant]
     Indication: PNEUMONIA
     Route: 048
  6. MUCODYNE [Concomitant]
     Indication: PNEUMONIA
     Route: 048
  7. NORVASC [Concomitant]
     Indication: HYPERTENSION
     Route: 048
  8. FLUTIDE [Concomitant]
     Indication: PNEUMONIA
     Route: 055
     Dates: start: 20050610, end: 20050627
  9. FAROM [Concomitant]
     Indication: PNEUMONIA
     Route: 048
     Dates: start: 20050627, end: 20050711
  10. GASTER [Concomitant]
     Indication: GASTRITIS
     Route: 048
     Dates: start: 20050604, end: 20050610
  11. UNASYN [Concomitant]
     Route: 042
     Dates: start: 20050711, end: 20050715
  12. UNASYN [Concomitant]
     Indication: PNEUMONIA
     Route: 042
     Dates: start: 20050711, end: 20050715
  13. FOSMICIN [Concomitant]
     Indication: PNEUMONIA
     Route: 042
     Dates: start: 20050711, end: 20050718
  14. OMEGACIN [Concomitant]
     Indication: PNEUMONIA
     Route: 042
     Dates: start: 20050716, end: 20050720
  15. MINOMYCIN [Concomitant]
     Indication: PNEUMONIA
     Route: 042
     Dates: start: 20050719, end: 20050720
  16. FUNGARD [Concomitant]
     Indication: PNEUMONIA
     Route: 042

REACTIONS (6)
  - ANTINEUTROPHIL CYTOPLASMIC ANTIBODY POSITIVE [None]
  - HAEMODIALYSIS [None]
  - LYMPHOCYTE STIMULATION TEST POSITIVE [None]
  - PNEUMONIA [None]
  - RENAL FAILURE ACUTE [None]
  - THERAPY NON-RESPONDER [None]
